FAERS Safety Report 6421686-6 (Version None)
Quarter: 2009Q4

REPORT INFORMATION
  Report Type: 
  Country: None (occurrence: None)
  Receive Date: 20091030
  Receipt Date: 20090928
  Transmission Date: 20100525
  Serious: No
  Sender: FDA-Public Use
  Company Number: US-BAYER-200915062BCC

PATIENT
  Sex: Female

DRUGS (3)
  1. FINACEA [Suspect]
     Indication: DRUG USE FOR UNKNOWN INDICATION
     Dosage: CONSUMER RECEIVED SAMPLES FROM HER PHYSICIAN
     Dates: start: 20090926
  2. LOESTRIN FE 1/20 [Concomitant]
     Indication: CONTRACEPTION
     Route: 065
  3. PRASCION CLENASER [Concomitant]
     Route: 065

REACTIONS (1)
  - APPLICATION SITE IRRITATION [None]
